FAERS Safety Report 9262123 (Version 1)
Quarter: 2013Q2

REPORT INFORMATION
  Report Type: Report from Study
  Country: CA (occurrence: CA)
  Receive Date: 20130430
  Receipt Date: 20130430
  Transmission Date: 20140414
  Serious: Yes (Life-Threatening, Other)
  Sender: FDA-Public Use
  Company Number: CA-ROCHE-1219570

PATIENT
  Age: 84 Year
  Sex: Male

DRUGS (4)
  1. RANIBIZUMAB [Suspect]
     Indication: AGE-RELATED MACULAR DEGENERATION
     Route: 050
     Dates: start: 20090331
  2. RANIBIZUMAB [Suspect]
     Route: 050
     Dates: start: 20090408
  3. RANIBIZUMAB [Suspect]
     Route: 050
     Dates: start: 20130319
  4. RANIBIZUMAB [Suspect]
     Route: 050
     Dates: start: 20130404, end: 20130404

REACTIONS (2)
  - Myocardial infarction [Unknown]
  - Inappropriate schedule of drug administration [Unknown]
